FAERS Safety Report 24577962 (Version 4)
Quarter: 2024Q4

REPORT INFORMATION
  Report Type: Report from Study
  Country: US (occurrence: US)
  Receive Date: 20241104
  Receipt Date: 20241223
  Transmission Date: 20250115
  Serious: Yes (Life-Threatening)
  Sender: ABBVIE
  Company Number: US-ABBVIE-5842874

PATIENT
  Age: 80 Year
  Sex: Male
  Weight: 59 kg

DRUGS (9)
  1. VENCLEXTA [Suspect]
     Active Substance: VENETOCLAX
     Indication: Acute myeloid leukaemia
     Dosage: DAY 1, FORM STRENGTH: 100 MILLIGRAM
     Route: 048
     Dates: start: 20240422, end: 20240422
  2. VENCLEXTA [Suspect]
     Active Substance: VENETOCLAX
     Indication: Acute myeloid leukaemia
     Dosage: DAY 2, ?FORM STRENGTH: 100 MILLIGRAM
     Route: 048
     Dates: start: 20240423, end: 20240423
  3. VENCLEXTA [Suspect]
     Active Substance: VENETOCLAX
     Indication: Acute myeloid leukaemia
     Dosage: DAY 3, FORM STRENGTH: 100 MILLIGRAM?LAST ADMIN DATE: 2024
     Route: 048
     Dates: start: 20240424
  4. VENCLEXTA [Suspect]
     Active Substance: VENETOCLAX
     Indication: Acute myeloid leukaemia
     Dosage: FORM STRENGTH 100 MG, FOR 14 DAYS, THEN OFF FOR ONE MONTH, THEN REPEAT CYCLE?LAST ADMIN DATE: 2024
     Route: 048
     Dates: start: 20240612
  5. VENCLEXTA [Suspect]
     Active Substance: VENETOCLAX
     Indication: Acute myeloid leukaemia
     Dosage: DAY 1, FORM STRENGTH: 100 MILLIGRAM?FIRST ADMIN DATE: 2024?LAST ADMIN DATE: 2024
     Route: 048
  6. VENCLEXTA [Suspect]
     Active Substance: VENETOCLAX
     Indication: Acute myeloid leukaemia
     Dosage: DAY 2, ?FORM STRENGTH: 100 MILLIGRAM?FIRST ADMIN DATE: 2024?LAST ADMIN DATE: 2024
     Route: 048
  7. VENCLEXTA [Suspect]
     Active Substance: VENETOCLAX
     Indication: Acute myeloid leukaemia
     Dosage: DAY 3, FORM STRENGTH: 100 MILLIGRAM?FIRST ADMIN DATE: 2024?LAST ADMIN DATE: 2024
     Route: 048
  8. VENCLEXTA [Suspect]
     Active Substance: VENETOCLAX
     Indication: Acute myeloid leukaemia
     Dosage: FORM STRENGTH 100 MG, FOR 14 DAYS, THEN OFF FOR ONE MONTH, THEN REPEAT CYCLE?FIRST ADMIN DATE: 2024
     Route: 048
  9. AZACITIDINE [Concomitant]
     Active Substance: AZACITIDINE
     Indication: Product used for unknown indication
     Dosage: 5 DAYS PER MONTH
     Route: 042
     Dates: start: 20240415

REACTIONS (21)
  - White blood cell count decreased [Not Recovered/Not Resolved]
  - Fatigue [Not Recovered/Not Resolved]
  - Diarrhoea [Not Recovered/Not Resolved]
  - Bone pain [Not Recovered/Not Resolved]
  - Myalgia [Not Recovered/Not Resolved]
  - Red blood cell count decreased [Not Recovered/Not Resolved]
  - Mean cell haemoglobin decreased [Unknown]
  - Platelet count decreased [Recovering/Resolving]
  - Red cell distribution width increased [Unknown]
  - Monocyte percentage increased [Unknown]
  - Lymphocyte count decreased [Unknown]
  - Blood glucose increased [Unknown]
  - Blood urea increased [Unknown]
  - Haemoglobin decreased [Unknown]
  - Haematocrit decreased [Unknown]
  - Constipation [Not Recovered/Not Resolved]
  - Hypogeusia [Not Recovered/Not Resolved]
  - Insomnia [Not Recovered/Not Resolved]
  - Dyspepsia [Not Recovered/Not Resolved]
  - Body mass index decreased [Not Recovered/Not Resolved]
  - Nausea [Not Recovered/Not Resolved]

NARRATIVE: CASE EVENT DATE: 20240101
